FAERS Safety Report 10073702 (Version 1)
Quarter: 2014Q2

REPORT INFORMATION
  Report Type: Spontaneous
  Country: US (occurrence: US)
  Receive Date: 20140411
  Receipt Date: 20140411
  Transmission Date: 20141212
  Serious: Yes (Hospitalization)
  Sender: FDA-Public Use
  Company Number: PHHY2014US040941

PATIENT
  Sex: Female

DRUGS (2)
  1. ACETYLSALICYLIC ACID [Suspect]
  2. MONTELUKAST [Concomitant]
     Indication: PREMEDICATION

REACTIONS (8)
  - Angioedema [Unknown]
  - Allergic respiratory disease [Unknown]
  - Wheezing [Unknown]
  - Cough [Unknown]
  - Chest discomfort [Unknown]
  - Nasal congestion [Recovering/Resolving]
  - Rhinorrhoea [Unknown]
  - Erythema [Unknown]
